FAERS Safety Report 8839471 (Version 1)
Quarter: 2012Q4

REPORT INFORMATION
  Report Type: 
  Country: US (occurrence: US)
  Receive Date: 20121015
  Receipt Date: 20121015
  Transmission Date: 20130627
  Serious: Yes (Hospitalization)
  Sender: FDA-Public Use
  Company Number: US-BAYER-2012-105242

PATIENT
  Age: 47 Year
  Sex: Female
  Weight: 74.83 kg

DRUGS (12)
  1. YASMIN [Suspect]
     Indication: PREMENSTRUAL SYNDROME
     Dosage: UNK
     Dates: start: 20040419, end: 20060626
  2. YASMIN [Suspect]
     Indication: CONTRACEPTION
  3. YASMIN [Suspect]
     Indication: MIGRAINE
  4. VALIUM [Concomitant]
     Dosage: 5 mg, 1/2 to 1 tab Q8 PRN
     Route: 048
     Dates: start: 20060428
  5. AMBIEN [Concomitant]
     Indication: SLEEP DISORDER
     Dosage: 10 mg, 1/2 tab
     Route: 048
     Dates: start: 2002
  6. CENTRUM [Concomitant]
     Dosage: 1 daily, UNK
     Route: 048
     Dates: start: 20060609
  7. VITAMIN C [Concomitant]
     Dosage: 500 mg, daily
     Route: 048
  8. CALCIUM [Concomitant]
     Dosage: 1000 mg, daily
     Dates: start: 20060609
  9. BABY ASPIRIN [Concomitant]
     Dosage: 84 mg daily, UNK
     Dates: start: 20060609
  10. ZOMIG [Concomitant]
     Dosage: 5 mg, UNK
     Route: 048
     Dates: start: 20060116, end: 20060707
  11. CHONDROITIN W/GLUCOSAMINE [Concomitant]
     Dosage: UNK
     Route: 048
     Dates: start: 20060609
  12. PROVENTIL [Concomitant]
     Indication: PALPITATIONS
     Dosage: UNK
     Dates: start: 20060612

REACTIONS (9)
  - Pulmonary embolism [Recovered/Resolved]
  - Deep vein thrombosis [Recovered/Resolved]
  - Dyspnoea [Recovered/Resolved]
  - Pain in extremity [Recovered/Resolved]
  - Hypoaesthesia [Recovered/Resolved]
  - Fear [None]
  - Anxiety [None]
  - Limb discomfort [Recovered/Resolved]
  - Pain [Recovered/Resolved]
